FAERS Safety Report 9680081 (Version 1)
Quarter: 2013Q4

REPORT INFORMATION
  Report Type: Spontaneous
  Country: US (occurrence: US)
  Receive Date: 20131111
  Receipt Date: 20131111
  Transmission Date: 20140711
  Serious: Yes (Other)
  Sender: FDA-Public Use
  Company Number: US-JNJFOC-20131017453

PATIENT
  Age: 70 Year
  Sex: Female

DRUGS (2)
  1. BENADRYL [Suspect]
     Route: 048
  2. BENADRYL [Suspect]
     Indication: PRURITUS
     Route: 048
     Dates: start: 20131025

REACTIONS (3)
  - Faeces discoloured [Unknown]
  - Hyperhidrosis [Unknown]
  - Drug ineffective [Unknown]
